FAERS Safety Report 8595756-0 (Version None)
Quarter: 2012Q3

REPORT INFORMATION
  Report Type: 
  Country: None (occurrence: None)
  Receive Date: 20120815
  Receipt Date: 20120806
  Transmission Date: 20120928
  Serious: Yes (Disabling)
  Sender: FDA-Public Use
  Company Number: FR-ELI_LILLY_AND_COMPANY-FR201208001403

PATIENT
  Sex: Female

DRUGS (1)
  1. GEMZAR [Suspect]
     Indication: PANCREATIC CARCINOMA
     Dosage: UNK
     Route: 042
     Dates: start: 20110811, end: 20120125

REACTIONS (1)
  - NEUROPATHY PERIPHERAL [None]
